FAERS Safety Report 8805132 (Version 1)
Quarter: 2012Q4

REPORT INFORMATION
  Report Type: Spontaneous
  Country: US (occurrence: None)
  Receive Date: 20120918
  Receipt Date: 20120918
  Transmission Date: 20130627
  Serious: Yes (Hospitalization)
  Sender: FDA-Public Use
  Company Number: None

PATIENT
  Age: 70 Year
  Sex: Male
  Weight: 82 kg

DRUGS (1)
  1. CISPLATIN [Suspect]
     Indication: NEOPLASM
     Route: 042
     Dates: start: 20120827, end: 20120911

REACTIONS (1)
  - Pancytopenia [None]
